FAERS Safety Report 5932412-9 (Version None)
Quarter: 2008Q4

REPORT INFORMATION
  Report Type: 
  Country: None (occurrence: None)
  Receive Date: 20081028
  Receipt Date: 20081015
  Transmission Date: 20090506
  Serious: Yes (Death, Hospitalization, Other)
  Sender: FDA-Public Use
  Company Number: US-AMGEN-US311012

PATIENT
  Sex: Female
  Weight: 49 kg

DRUGS (6)
  1. NPLATE [Suspect]
     Indication: IDIOPATHIC THROMBOCYTOPENIC PURPURA
     Route: 058
     Dates: start: 20080922
  2. PREDNISONE TAB [Concomitant]
  3. AMARYL [Concomitant]
  4. NYSTATIN [Concomitant]
     Route: 048
  5. PRILOSEC [Concomitant]
  6. TOPROL-XL [Concomitant]

REACTIONS (10)
  - CARDIAC FAILURE CONGESTIVE [None]
  - DECREASED APPETITE [None]
  - DEHYDRATION [None]
  - ECCHYMOSIS [None]
  - FALL [None]
  - HYPONATRAEMIA [None]
  - PLATELET COUNT INCREASED [None]
  - PULMONARY EMBOLISM [None]
  - RENAL FAILURE [None]
  - VENTRICULAR TACHYCARDIA [None]
